FAERS Safety Report 9004854 (Version 1)
Quarter: 2013Q1

REPORT INFORMATION
  Report Type: Spontaneous
  Country: US (occurrence: US)
  Receive Date: 20130109
  Receipt Date: 20130109
  Transmission Date: 20140127
  Serious: No
  Sender: FDA-Public Use
  Company Number: US-PFIZER INC-2013008365

PATIENT
  Age: 52 Year
  Sex: Female
  Weight: 72.56 kg

DRUGS (7)
  1. NEURONTIN [Suspect]
     Indication: PAIN
     Dosage: UNK
     Route: 048
  2. NEURONTIN [Suspect]
     Dosage: 300 MG, 3X/DAY
     Route: 048
     Dates: end: 2011
  3. NEURONTIN [Suspect]
     Dosage: 800 MG, 3X/DAY
     Dates: start: 2011
  4. NEURONTIN [Suspect]
     Dosage: 400 MG, 2X/DAY
     Route: 048
  5. TRAMADOL [Concomitant]
     Dosage: 50 MG, 4X/DAY
  6. FLEXERIL [Concomitant]
     Dosage: UNK
  7. PAXIL [Concomitant]
     Indication: DEPRESSION
     Dosage: UNK

REACTIONS (4)
  - Drug prescribing error [Unknown]
  - Incorrect dose administered [Unknown]
  - Pain [Not Recovered/Not Resolved]
  - Drug ineffective [Unknown]
